FAERS Safety Report 16266182 (Version 2)
Quarter: 2020Q2

REPORT INFORMATION
  Report Type: Spontaneous
  Country: US (occurrence: US)
  Receive Date: 20190502
  Receipt Date: 20200407
  Transmission Date: 20200713
  Serious: Yes (Other)
  Sender: FDA-Public Use
  Company Number: US-GILEAD-2019-0405370

PATIENT
  Age: 55 Year
  Sex: Male

DRUGS (60)
  1. GENVOYA [Concomitant]
     Active Substance: COBICISTAT\ELVITEGRAVIR\EMTRICITABINE\TENOFOVIR ALAFENAMIDE FUMARATE
     Dosage: UNK
     Dates: start: 20161027, end: 20181129
  2. GLIPIZIDE. [Concomitant]
     Active Substance: GLIPIZIDE
  3. VITAMIN B6 [Concomitant]
     Active Substance: PYRIDOXINE HYDROCHLORIDE
  4. PANTOPRAZOLE SODIUM. [Concomitant]
     Active Substance: PANTOPRAZOLE SODIUM
  5. TYLENOL [Concomitant]
     Active Substance: ACETAMINOPHEN
  6. KETOCONAZOLE. [Concomitant]
     Active Substance: KETOCONAZOLE
  7. GLYBURIDE. [Concomitant]
     Active Substance: GLYBURIDE
  8. ACYCLOVIR ABBOTT VIAL [Concomitant]
  9. CARVEDILOL. [Concomitant]
     Active Substance: CARVEDILOL
  10. IBUPROFEN. [Concomitant]
     Active Substance: IBUPROFEN
  11. BENZONATATE. [Concomitant]
     Active Substance: BENZONATATE
  12. AMLODIPINE BESYLATE. [Concomitant]
     Active Substance: AMLODIPINE BESYLATE
  13. MELATONIN [Concomitant]
     Active Substance: MELATONIN
  14. ALEVE [Concomitant]
     Active Substance: NAPROXEN SODIUM
  15. FENOFIBRATE. [Concomitant]
     Active Substance: FENOFIBRATE
  16. NYSTATIN. [Concomitant]
     Active Substance: NYSTATIN
  17. FISH OIL [Concomitant]
     Active Substance: FISH OIL
  18. MELOXICAM. [Concomitant]
     Active Substance: MELOXICAM
  19. TRUVADA [Suspect]
     Active Substance: EMTRICITABINE\TENOFOVIR DISOPROXIL FUMARATE
     Dosage: 1 DOSAGE FORM, QD
     Route: 048
     Dates: start: 20101027, end: 20161027
  20. ATRIPLA [Suspect]
     Active Substance: EFAVIRENZ\EMTRICITABINE\TENOFOVIR DISOPROXIL FUMARATE
     Dosage: UNK
     Route: 048
     Dates: start: 200607, end: 201012
  21. LEVSIN [Concomitant]
     Active Substance: HYOSCYAMINE SULFATE
  22. METOCLOPRAMIDE. [Concomitant]
     Active Substance: METOCLOPRAMIDE
  23. HYDROCODONE/ACETAMINOPHEN [Concomitant]
     Active Substance: ACETAMINOPHEN\HYDROCODONE
  24. PRENATAL PLUS [Concomitant]
     Active Substance: .ALPHA.-TOCOPHEROL ACETATE, DL-\.BETA.-CAROTENE\ASCORBIC ACID\CALCIUM CARBONATE\CHOLECALCIFEROL\CUPRIC OXIDE\CYANOCOBALAMIN\FERROUS FUMARATE\FOLIC ACID\NIACINAMIDE\PYRIDOXINE HYDROCHLORIDE\RIBOFLAVIN\THIAMINE MONONITRATE\VITAMIN A ACETATE\ZINC OXIDE
  25. VENTOLIN HFA [Concomitant]
     Active Substance: ALBUTEROL SULFATE
  26. AZITHROMYCIN ANHYDROUS. [Concomitant]
     Active Substance: AZITHROMYCIN ANHYDROUS
  27. TRUVADA [Suspect]
     Active Substance: EMTRICITABINE\TENOFOVIR DISOPROXIL FUMARATE
     Indication: HIV INFECTION
     Dosage: 1 DOSAGE FORM, QD
     Route: 048
     Dates: start: 200602, end: 200802
  28. BIKTARVY [Concomitant]
     Active Substance: BICTEGRAVIR SODIUM\EMTRICITABINE\TENOFOVIR ALAFENAMIDE FUMARATE
     Dosage: UNK
     Dates: start: 20181129
  29. CALCIUM 600 + D [Concomitant]
     Active Substance: CALCIUM\VITAMIN D
  30. CARAFATE [Concomitant]
     Active Substance: SUCRALFATE
  31. NEXIUM I.V. [Concomitant]
     Active Substance: ESOMEPRAZOLE SODIUM
  32. HUMALOG JUNIOR KWIKPEN [Concomitant]
     Active Substance: INSULIN LISPRO
  33. SULFAMETHOXAZOLE AND TRIMETHOPRIM [Concomitant]
     Active Substance: SULFAMETHOXAZOLE\TRIMETHOPRIM
  34. LEVOFLOXACIN. [Concomitant]
     Active Substance: LEVOFLOXACIN
  35. FLUCONAZOLE. [Concomitant]
     Active Substance: FLUCONAZOLE
  36. PREPLUS B12 [Concomitant]
  37. PROMETHAZINE [Concomitant]
     Active Substance: PROMETHAZINE HYDROCHLORIDE
  38. HIBICLENS [Concomitant]
     Active Substance: CHLORHEXIDINE GLUCONATE
  39. CLINDAMYCIN. [Concomitant]
     Active Substance: CLINDAMYCIN
  40. ONDANSETRON [Concomitant]
     Active Substance: ONDANSETRON
  41. COREG [Concomitant]
     Active Substance: CARVEDILOL
  42. LEXAPRO [Concomitant]
     Active Substance: ESCITALOPRAM OXALATE
  43. HYDROCHLOROTHIAZIDE. [Concomitant]
     Active Substance: HYDROCHLOROTHIAZIDE
  44. TRUVADA [Suspect]
     Active Substance: EMTRICITABINE\TENOFOVIR DISOPROXIL FUMARATE
     Dosage: 1 DOSAGE FORM, QD
     Route: 048
     Dates: start: 201012, end: 201512
  45. ATRIPLA [Suspect]
     Active Substance: EFAVIRENZ\EMTRICITABINE\TENOFOVIR DISOPROXIL FUMARATE
     Indication: HIV INFECTION
     Dosage: UNK
     Route: 048
     Dates: start: 200803, end: 201212
  46. LANTUS [Concomitant]
     Active Substance: INSULIN GLARGINE
  47. FLUTICASONE PROPIONATE. [Concomitant]
     Active Substance: FLUTICASONE PROPIONATE
  48. CLARITIN ALLERGY DECONGESTANT [Concomitant]
  49. DICYCLOMINE HCL [Concomitant]
     Active Substance: DICYCLOMINE HYDROCHLORIDE
  50. ATORVASTATIN [Concomitant]
     Active Substance: ATORVASTATIN
  51. ASPIRIN 81 [Concomitant]
     Active Substance: ASPIRIN
  52. ISENTRESS [Concomitant]
     Active Substance: RALTEGRAVIR POTASSIUM
  53. LISINOPRIL. [Concomitant]
     Active Substance: LISINOPRIL
  54. TRICOR [ADENOSINE] [Concomitant]
     Active Substance: ADENOSINE
  55. ISONIAZID. [Concomitant]
     Active Substance: ISONIAZID
  56. ONGLYZA [Concomitant]
     Active Substance: SAXAGLIPTIN HYDROCHLORIDE
  57. SERTRALINE [Concomitant]
     Active Substance: SERTRALINE HYDROCHLORIDE
  58. ESCITALOPRAM OXALATE. [Concomitant]
     Active Substance: ESCITALOPRAM OXALATE
  59. VIAGRA [Concomitant]
     Active Substance: SILDENAFIL CITRATE
  60. MUCINEX [Concomitant]
     Active Substance: GUAIFENESIN

REACTIONS (11)
  - Anxiety [Unknown]
  - Pain [Unknown]
  - Hip arthroplasty [Recovered/Resolved]
  - Economic problem [Unknown]
  - Anhedonia [Unknown]
  - Lipohypertrophy [Not Recovered/Not Resolved]
  - Osteonecrosis [Not Recovered/Not Resolved]
  - Bone loss [Unknown]
  - Renal failure [Not Recovered/Not Resolved]
  - Emotional distress [Unknown]
  - Bone density decreased [Unknown]

NARRATIVE: CASE EVENT DATE: 2006
